FAERS Safety Report 4820857-X (Version None)
Quarter: 2005Q4

REPORT INFORMATION
  Report Type: 
  Country: None (occurrence: None)
  Receive Date: 20051103
  Receipt Date: 20051013
  Transmission Date: 20060501
  Serious: Yes (Hospitalization, Other)
  Sender: FDA-Public Use
  Company Number: USA0510110895

PATIENT
  Age: 72 Year
  Sex: Female

DRUGS (3)
  1. FORTEO [Suspect]
  2. DIGOXIN [Concomitant]
  3. TOPROL (METROPROLOL SUCCINATE) [Concomitant]

REACTIONS (1)
  - ATRIAL FIBRILLATION [None]
